FAERS Safety Report 7374074-2 (Version None)
Quarter: 2011Q1

REPORT INFORMATION
  Report Type: 
  Country: None (occurrence: None)
  Receive Date: 20110325
  Receipt Date: 20110317
  Transmission Date: 20110831
  Serious: Yes (Other)
  Sender: FDA-Public Use
  Company Number: US-US-EMD SERONO, INC.-7039721

PATIENT
  Sex: Female

DRUGS (1)
  1. REBIF [Suspect]
     Indication: MULTIPLE SCLEROSIS
     Route: 058
     Dates: start: 20090723

REACTIONS (5)
  - WRIST FRACTURE [None]
  - INJECTION SITE ERYTHEMA [None]
  - ANTINUCLEAR ANTIBODY INCREASED [None]
  - NASOPHARYNGITIS [None]
  - CHILLS [None]
